FAERS Safety Report 4629081-7 (Version None)
Quarter: 2005Q2

REPORT INFORMATION
  Report Type: 
  Country: None (occurrence: None)
  Receive Date: 20050407
  Receipt Date: 20050325
  Transmission Date: 20051028
  Serious: Yes (Hospitalization)
  Sender: FDA-Public Use
  Company Number: FR-GLAXOSMITHKLINE-B0375941A

PATIENT
  Age: 45 Year
  Sex: Female
  Weight: 120 kg

DRUGS (3)
  1. DEROXAT [Suspect]
     Dosage: 10MG PER DAY
     Route: 048
     Dates: start: 20050110, end: 20050213
  2. DEPAKOTE [Suspect]
     Dosage: 1G PER DAY
     Route: 048
     Dates: start: 20041022, end: 20050207
  3. LOXAPAC [Concomitant]
     Dosage: 50MG PER DAY
     Route: 048
     Dates: start: 20000601

REACTIONS (4)
  - GAMMA-GLUTAMYLTRANSFERASE INCREASED [None]
  - HEPATIC PAIN [None]
  - HEPATITIS [None]
  - TRANSAMINASES INCREASED [None]
